FAERS Safety Report 10930665 (Version 1)
Quarter: 2015Q1

REPORT INFORMATION
  Report Type: Spontaneous
  Country: FR (occurrence: None)
  Receive Date: 20150317
  Receipt Date: 20150317
  Transmission Date: 20150721
  Serious: Yes (Hospitalization)
  Sender: FDA-Public Use
  Company Number: FR-20150073

PATIENT
  Age: 65 Year
  Sex: Male

DRUGS (13)
  1. LANTUS [Concomitant]
     Active Substance: INSULIN GLARGINE
  2. GLUCOPHAGE (METFORMIN HYDROHCLORIDE) [Concomitant]
  3. PLAVIX (CLOPIDOGREL BISULFATE) [Concomitant]
  4. HEXABRIX [Suspect]
     Active Substance: IOXAGLATE MEGLUMINE\IOXAGLATE SODIUM
     Indication: ARTERIOGRAM CORONARY
     Dosage: (NOT OTHERWISE SPECIFIED)
     Route: 042
     Dates: start: 20150127, end: 20150127
  5. DIFFU-K (POTASSIUM CHLORIDE) [Concomitant]
  6. ASPEGIC (ACETYLASLICYLATE LYSINE) [Concomitant]
  7. DAFALGAN (PARACETAMOL) [Concomitant]
  8. AMLOR (AMLODIPINE BESILATE) [Concomitant]
     Active Substance: AMLODIPINE BESYLATE
  9. UMULINE (INSULIN HUMAN ZINC SUSPENSION) [Concomitant]
  10. TRIATEC (RAMIPRIL) [Concomitant]
     Active Substance: RAMIPRIL
  11. LOVENOX [Concomitant]
     Active Substance: ENOXAPARIN SODIUM
  12. INEXIUM (ESOMEPRAZOLE MAGNESIUM) [Concomitant]
     Active Substance: ESOMEPRAZOLE MAGNESIUM
  13. CONTRAMAL (TRAMADOL HYDROCHLORIDE) [Concomitant]

REACTIONS (8)
  - Atrial fibrillation [None]
  - Renal tubular necrosis [None]
  - Coronary artery stenosis [None]
  - Ketoacidosis [None]
  - Cell death [None]
  - Cerebral artery embolism [None]
  - Transient ischaemic attack [None]
  - Renal failure [None]

NARRATIVE: CASE EVENT DATE: 20150207
